FAERS Safety Report 6843572-X (Version None)
Quarter: 2010Q3

REPORT INFORMATION
  Report Type: 
  Country: None (occurrence: None)
  Receive Date: 20100712
  Receipt Date: 20100630
  Transmission Date: 20110219
  Serious: No
  Sender: FDA-Public Use
  Company Number: 2010SP032049

PATIENT
  Age: 24 Year
  Sex: Female
  Weight: 70 kg

DRUGS (2)
  1. NUVARING [Suspect]
     Indication: CONTRACEPTION
     Dosage: QM;VAG
     Route: 067
     Dates: start: 20090603
  2. GLAFORNIL [Concomitant]

REACTIONS (2)
  - DEVICE EXPULSION [None]
  - DEVICE MISUSE [None]
